FAERS Safety Report 9468877 (Version 2)
Quarter: 2013Q3

REPORT INFORMATION
  Report Type: Spontaneous
  Country: NL (occurrence: NL)
  Receive Date: 20130821
  Receipt Date: 20130821
  Transmission Date: 20140515
  Serious: Yes (Death, Congenital Anomaly, Other)
  Sender: FDA-Public Use
  Company Number: NL-MERCK-1308NLD006896

PATIENT
  Age: 1 Day
  Sex: 0

DRUGS (1)
  1. NASONEX [Suspect]
     Dosage: UNK
     Route: 064
     Dates: end: 20130318

REACTIONS (3)
  - Foetal death [Fatal]
  - Trisomy 21 [Fatal]
  - Foetal exposure during pregnancy [Recovered/Resolved]
